FAERS Safety Report 8615120-5 (Version None)
Quarter: 2012Q3

REPORT INFORMATION
  Report Type: 
  Country: None (occurrence: None)
  Receive Date: 20120823
  Receipt Date: 20120803
  Transmission Date: 20120928
  Serious: Yes (Hospitalization, Other)
  Sender: FDA-Public Use
  Company Number: US-RB-043771-12

PATIENT
  Age: 27 Year
  Sex: Female

DRUGS (8)
  1. SUBUTEX [Suspect]
     Indication: DRUG DEPENDENCE
     Dosage: DOSING DETAILS UNKNOWN
     Route: 065
  2. SUBOXONE [Suspect]
     Indication: DRUG DEPENDENCE
     Dosage: DOSING DETAILS UNKNOWN
     Route: 065
  3. BENZODIAZEPINES [Suspect]
     Indication: PRODUCT USED FOR UNKNOWN INDICATION
     Dosage: DOSING DETAILS UNKNOWN
     Route: 065
  4. GENERIC AMPHETAMINE SALTS [Suspect]
     Indication: PRODUCT USED FOR UNKNOWN INDICATION
     Dosage: DOSING DETAILS UNKNOWN
     Route: 065
  5. COCAINE [Suspect]
     Indication: PRODUCT USED FOR UNKNOWN INDICATION
     Route: 065
  6. SEROQUEL [Suspect]
     Indication: PRODUCT USED FOR UNKNOWN INDICATION
     Dosage: UNKNOWN DOSING DETAILS
     Route: 065
  7. BARBITURATES [Suspect]
     Indication: PRODUCT USED FOR UNKNOWN INDICATION
     Dosage: DOSING DETAILS UNKNOWN
     Route: 065
  8. METHYLPHENIDATE [Suspect]
     Indication: PRODUCT USED FOR UNKNOWN INDICATION
     Dosage: DOSING DETAILS UNKNOWN
     Route: 065

REACTIONS (12)
  - LABOUR PAIN [None]
  - MUSCLE SPASMS [None]
  - MATERNAL EXPOSURE DURING PREGNANCY [None]
  - AGITATION [None]
  - PSYCHOTIC DISORDER [None]
  - HEART RATE INCREASED [None]
  - DRUG ABUSE [None]
  - ANXIETY [None]
  - PREMATURE LABOUR [None]
  - PREMATURE DELIVERY [None]
  - VAGINAL HAEMORRHAGE [None]
  - EYE MOVEMENT DISORDER [None]
